FAERS Safety Report 22263795 (Version 1)
Quarter: 2023Q2

REPORT INFORMATION
  Report Type: Report from Study
  Country: CO (occurrence: CO)
  Receive Date: 20230428
  Receipt Date: 20230428
  Transmission Date: 20230721
  Serious: Yes (Other)
  Sender: FDA-Public Use
  Company Number: CO-ABBVIE-4744440

PATIENT
  Age: 65 Year
  Sex: Male
  Weight: 73 kg

DRUGS (3)
  1. HUMIRA [Suspect]
     Active Substance: ADALIMUMAB
     Indication: Colitis ulcerative
     Dosage: FORM STRENGTH: 40 MILLIGRAM
     Route: 058
     Dates: start: 20150625, end: 20230130
  2. TAMSULOSIN [Concomitant]
     Active Substance: TAMSULOSIN
     Indication: Benign prostatic hyperplasia
     Dosage: 0.4 MILLIGRAM
     Route: 048
  3. CINITAPRIDE [Concomitant]
     Active Substance: CINITAPRIDE
     Indication: Urinary tract infection
     Route: 048
     Dates: start: 202304

REACTIONS (5)
  - Benign prostatic hyperplasia [Recovering/Resolving]
  - Testicular pain [Recovering/Resolving]
  - Urinary tract infection [Recovering/Resolving]
  - Orchitis noninfective [Recovering/Resolving]
  - Testicular swelling [Unknown]

NARRATIVE: CASE EVENT DATE: 20230201
